FAERS Safety Report 18173205 (Version 1)
Quarter: 2020Q3

REPORT INFORMATION
  Report Type: Spontaneous
  Country: BG (occurrence: BG)
  Receive Date: 20200820
  Receipt Date: 20200820
  Transmission Date: 20201103
  Serious: Yes (Other)
  Sender: FDA-Public Use
  Company Number: BG-LUPIN PHARMACEUTICALS INC.-2020-04889

PATIENT
  Age: 74 Year
  Sex: Female

DRUGS (3)
  1. VALSARTAN. [Suspect]
     Active Substance: VALSARTAN
     Indication: HYPERTENSION
     Dosage: 1 DOSAGE FORM, QD (PERIOD JUL?2017 ? SEP?2018)
     Route: 065
     Dates: start: 201707, end: 201809
  2. AMLODIPINE AND VALSARTAN [Suspect]
     Active Substance: AMLODIPINE\VALSARTAN
     Indication: HYPERTENSION
     Dosage: 2 DOSAGE FORM, QD (5 MG/160MG 2 X 1 PER D)
     Route: 065
     Dates: start: 201810
  3. OLMESARTAN [Suspect]
     Active Substance: OLMESARTAN
     Indication: HYPERTENSION
     Dosage: 1 DOSAGE FORM, QD 2?3 YEARS (BEFORE JUL?2017)
     Route: 065

REACTIONS (2)
  - Acral lentiginous melanoma [Unknown]
  - Melanocytic naevus [Unknown]
